FAERS Safety Report 9095235 (Version 4)
Quarter: 2013Q2

REPORT INFORMATION
  Report Type: Spontaneous
  Country: JP (occurrence: JP)
  Receive Date: 20130219
  Receipt Date: 20130503
  Transmission Date: 20140414
  Serious: Yes (Hospitalization)
  Sender: FDA-Public Use
  Company Number: JP-009507513-1302JPN005586

PATIENT
  Age: 65 Year
  Sex: Male
  Weight: 56 kg

DRUGS (15)
  1. PEGINTRON [Suspect]
     Indication: CHRONIC HEPATITIS C
     Dosage: 1.5 MICROGRAM PER KILOGRAM, QW
     Route: 058
     Dates: start: 20121226, end: 20130125
  2. REBETOL [Suspect]
     Indication: CHRONIC HEPATITIS C
     Dosage: 600 MG, QD
     Route: 048
     Dates: start: 20121226, end: 20130110
  3. REBETOL [Suspect]
     Dosage: 400 MG, QD
     Route: 048
     Dates: start: 20130111, end: 20130124
  4. REBETOL [Suspect]
     Dosage: 200 MG, QD
     Route: 048
     Dates: start: 20130125, end: 20130131
  5. TELAVIC [Suspect]
     Indication: CHRONIC HEPATITIS C
     Dosage: 2250 MG, QD
     Route: 048
     Dates: start: 20121226, end: 20121229
  6. TELAVIC [Suspect]
     Dosage: 1500 MG, QD
     Route: 048
     Dates: start: 20121230, end: 20121230
  7. TELAVIC [Suspect]
     Dosage: 750 MG, QD
     Route: 048
     Dates: start: 20121231, end: 20121231
  8. ZYLORIC [Suspect]
     Indication: BLOOD URIC ACID INCREASED
     Dosage: 200 MG, QD
     Route: 048
     Dates: start: 20121227, end: 20121230
  9. ZYLORIC [Suspect]
     Dosage: 300 MG, QD
     Route: 048
     Dates: start: 20121231, end: 20130131
  10. EUGLUCON [Concomitant]
     Dosage: 2.5 MG, QD
     Route: 048
  11. GLACTIV [Concomitant]
     Dosage: 50 MG, QD
     Route: 048
  12. SEIBULE [Concomitant]
     Dosage: 150 MG, QD
     Route: 048
  13. LEVEMIR [Concomitant]
     Dosage: 10 DF, QD
     Route: 058
  14. ZETIA TABLETS 10MG [Concomitant]
     Indication: PROPHYLAXIS
     Dosage: 10 MG, QD
     Route: 048
     Dates: start: 20121226
  15. LOXONIN [Suspect]
     Indication: PYREXIA
     Dosage: 60 MG, QD
     Route: 048
     Dates: start: 20121226

REACTIONS (1)
  - Dermatitis exfoliative [Recovered/Resolved]
